FAERS Safety Report 7737629-9 (Version None)
Quarter: 2011Q3

REPORT INFORMATION
  Report Type: 
  Country: None (occurrence: None)
  Receive Date: 20110908
  Receipt Date: 20110906
  Transmission Date: 20111222
  Serious: Yes (Other)
  Sender: FDA-Public Use
  Company Number: US-BAYER-2011-082330

PATIENT
  Sex: Female

DRUGS (2)
  1. YASMIN [Suspect]
     Dosage: UNK
     Dates: start: 20021001
  2. YAZ [Suspect]
     Dosage: UNK
     Dates: start: 20021001

REACTIONS (3)
  - GALLBLADDER INJURY [None]
  - INJURY [None]
  - PAIN [None]
